FAERS Safety Report 17218622 (Version 1)
Quarter: 2020Q1

REPORT INFORMATION
  Report Type: Spontaneous
  Country: US (occurrence: US)
  Receive Date: 20191230
  Receipt Date: 20191230
  Transmission Date: 20200409
  Serious: Yes (Other)
  Sender: FDA-Public Use
  Company Number: None

PATIENT
  Age: 40 Year
  Sex: Female
  Weight: 89.1 kg

DRUGS (4)
  1. ADVIL [Concomitant]
     Active Substance: IBUPROFEN
  2. AMBIEN [Concomitant]
     Active Substance: ZOLPIDEM TARTRATE
  3. METRONIDAZOLE 500MG TABLET [Suspect]
     Active Substance: METRONIDAZOLE
     Indication: PELVIC INFECTION
     Dosage: ?          QUANTITY:2 TABLET(S);?
     Route: 048
     Dates: start: 20191224, end: 20191226
  4. MELATONIN DROPS [Concomitant]

REACTIONS (4)
  - Cough [None]
  - Product quality issue [None]
  - Feeling abnormal [None]
  - Product solubility abnormal [None]

NARRATIVE: CASE EVENT DATE: 20191224
